FAERS Safety Report 21098163 (Version 3)
Quarter: 2022Q3

REPORT INFORMATION
  Report Type: Other
  Country: US (occurrence: None)
  Receive Date: 20220719
  Receipt Date: 20220907
  Transmission Date: 20221026
  Serious: Yes (Other)
  Sender: FDA-Public Use
  Company Number: US-ROCHE-3013734

PATIENT
  Age: 78 Year
  Sex: Female
  Weight: 85.806 kg

DRUGS (15)
  1. ACTEMRA [Suspect]
     Active Substance: TOCILIZUMAB
     Indication: Giant cell arteritis
     Dosage: INJECT 0.9 ML SUBCUTANEOUSLY EVERY OTHER WEEK
     Route: 058
     Dates: start: 20191031, end: 20220107
  2. ACTEMRA [Suspect]
     Active Substance: TOCILIZUMAB
  3. ACTEMRA [Suspect]
     Active Substance: TOCILIZUMAB
  4. ACTEMRA [Suspect]
     Active Substance: TOCILIZUMAB
     Indication: Spinal osteoarthritis
  5. ACTEMRA [Suspect]
     Active Substance: TOCILIZUMAB
  6. ACTEMRA [Suspect]
     Active Substance: TOCILIZUMAB
  7. ACTEMRA [Suspect]
     Active Substance: TOCILIZUMAB
     Indication: Osteoarthritis
  8. ACTEMRA [Suspect]
     Active Substance: TOCILIZUMAB
  9. ACTEMRA [Suspect]
     Active Substance: TOCILIZUMAB
  10. ACTEMRA [Suspect]
     Active Substance: TOCILIZUMAB
     Indication: Autoimmune disorder
  11. ACTEMRA [Suspect]
     Active Substance: TOCILIZUMAB
  12. ACTEMRA [Suspect]
     Active Substance: TOCILIZUMAB
  13. ATENOLOL [Concomitant]
     Active Substance: ATENOLOL
     Indication: Hypertension
     Route: 048
  14. LOSARTAN [Concomitant]
     Active Substance: LOSARTAN
     Indication: Hypertension
     Route: 048
  15. CYCLOBENZAPRINE [Concomitant]
     Active Substance: CYCLOBENZAPRINE

REACTIONS (4)
  - COVID-19 pneumonia [Unknown]
  - COVID-19 [Unknown]
  - Sinusitis [Unknown]
  - Alopecia [Unknown]

NARRATIVE: CASE EVENT DATE: 20220109
